FAERS Safety Report 17852083 (Version 5)
Quarter: 2020Q4

REPORT INFORMATION
  Report Type: Spontaneous
  Country: US (occurrence: US)
  Receive Date: 20200602
  Receipt Date: 20201116
  Transmission Date: 20210113
  Serious: No
  Sender: FDA-Public Use
  Company Number: US-JNJFOC-20200530099

PATIENT
  Age: 52 Year
  Sex: Female

DRUGS (5)
  1. INVEGA [Suspect]
     Active Substance: PALIPERIDONE
     Indication: BIPOLAR DISORDER
     Route: 048
     Dates: start: 201502
  2. LITHIUM. [Concomitant]
     Active Substance: LITHIUM
     Indication: BIPOLAR DISORDER
     Route: 065
  3. DEPAKOTE [Concomitant]
     Active Substance: DIVALPROEX SODIUM
     Indication: BIPOLAR DISORDER
     Route: 065
  4. COGENTIN [Concomitant]
     Active Substance: BENZTROPINE MESYLATE
     Indication: BIPOLAR DISORDER
     Route: 065
  5. INVEGA SUSTENNA [Concomitant]
     Active Substance: PALIPERIDONE PALMITATE
     Indication: BIPOLAR DISORDER
     Route: 030
     Dates: start: 201502

REACTIONS (12)
  - Paraesthesia [Not Recovered/Not Resolved]
  - Breast engorgement [Not Recovered/Not Resolved]
  - Dizziness [Recovering/Resolving]
  - Product dose omission issue [Unknown]
  - Fatigue [Recovering/Resolving]
  - Myalgia [Not Recovered/Not Resolved]
  - Malaise [Not Recovered/Not Resolved]
  - Adverse drug reaction [Not Recovered/Not Resolved]
  - Tremor [Not Recovered/Not Resolved]
  - Product availability issue [Unknown]
  - Gait inability [Unknown]
  - Chest pain [Not Recovered/Not Resolved]

NARRATIVE: CASE EVENT DATE: 20200522
